FAERS Safety Report 9956905 (Version 1)
Quarter: 2014Q1

REPORT INFORMATION
  Report Type: Report from Study
  Country: US (occurrence: US)
  Receive Date: 20140304
  Receipt Date: 20140304
  Transmission Date: 20141002
  Serious: No
  Sender: FDA-Public Use
  Company Number: US-ABBVIE-13P-163-1126379-00

PATIENT
  Age: 61 Year
  Sex: Female

DRUGS (10)
  1. HUMIRA [Suspect]
     Indication: CROHN^S DISEASE
     Dates: start: 20130411
  2. PROTONIX [Concomitant]
     Indication: GASTROOESOPHAGEAL REFLUX DISEASE
  3. LEVOTHROID [Concomitant]
     Indication: THYROID DISORDER
  4. LEXAPRO [Concomitant]
     Indication: DEPRESSION
     Dosage: 1 DAILY
  5. AZATHIOPRINE [Concomitant]
     Indication: CROHN^S DISEASE
     Dosage: 3 TO 9 TABS DAILY
  6. VITAMIN D [Concomitant]
     Indication: PRODUCT USED FOR UNKNOWN INDICATION
     Dosage: DAILY
  7. VITAMIN B12 [Concomitant]
     Indication: PRODUCT USED FOR UNKNOWN INDICATION
     Dosage: DAILY
  8. MULTIVITAMINS [Concomitant]
     Indication: PRODUCT USED FOR UNKNOWN INDICATION
  9. LIPITOR [Concomitant]
     Indication: BLOOD CHOLESTEROL
     Dosage: DAILY
  10. COLAZAL [Concomitant]
     Indication: CROHN^S DISEASE
     Dosage: DAILY

REACTIONS (4)
  - Frequent bowel movements [Not Recovered/Not Resolved]
  - Diarrhoea [Not Recovered/Not Resolved]
  - Upper respiratory tract congestion [Unknown]
  - Hypersensitivity [Unknown]
